FAERS Safety Report 7268861-9 (Version None)
Quarter: 2011Q1

REPORT INFORMATION
  Report Type: 
  Country: None (occurrence: None)
  Receive Date: 20110201
  Receipt Date: 20110127
  Transmission Date: 20110831
  Serious: Yes (Hospitalization, Other)
  Sender: FDA-Public Use
  Company Number: FR-PFIZER INC-2011019265

PATIENT
  Age: 92 Year
  Sex: Male

DRUGS (8)
  1. PLAVIX [Concomitant]
     Dosage: UNK
  2. ZANIDIP [Concomitant]
     Dosage: UNK
  3. INSULIN [Concomitant]
     Dosage: UNK
  4. TAHOR [Suspect]
     Dosage: 40 MG, 1X/DAY
     Route: 048
     Dates: start: 20100105, end: 20100110
  5. AMLOR [Concomitant]
     Dosage: UNK
     Dates: start: 20110105
  6. ERYTHROCINE [Concomitant]
     Dosage: UNK
     Dates: start: 20101217
  7. DIPROSONE [Concomitant]
     Dosage: UNK
  8. LASIX [Concomitant]
     Dosage: UNK

REACTIONS (3)
  - CYTOLYTIC HEPATITIS [None]
  - ERYSIPELAS [None]
  - HEPATOCELLULAR INJURY [None]
